FAERS Safety Report 22914217 (Version 3)
Quarter: 2024Q1

REPORT INFORMATION
  Report Type: Spontaneous
  Country: FR (occurrence: FR)
  Receive Date: 20230906
  Receipt Date: 20240305
  Transmission Date: 20240410
  Serious: Yes (Other)
  Sender: FDA-Public Use
  Company Number: None

PATIENT
  Age: 20 Year
  Sex: Male
  Weight: 92 kg

DRUGS (13)
  1. CISATRACURIUM BESYLATE [Suspect]
     Active Substance: CISATRACURIUM BESYLATE
     Indication: General anaesthesia
     Dosage: 8 MG, ONCE/SINGLE
     Route: 042
     Dates: start: 20230628, end: 20230628
  2. CLINDAMYCIN [Suspect]
     Active Substance: CLINDAMYCIN
     Indication: Antibiotic prophylaxis
     Dosage: 900 MG, ONCE/SINGLE
     Route: 042
     Dates: start: 20230628, end: 20230628
  3. DEXAMETHASONE [Suspect]
     Active Substance: DEXAMETHASONE
     Indication: General anaesthesia
     Dosage: 8 MG, ONCE/SINGLE
     Route: 042
     Dates: start: 20230628, end: 20230628
  4. NEFOPAM HYDROCHLORIDE [Suspect]
     Active Substance: NEFOPAM HYDROCHLORIDE
     Indication: Pain prophylaxis
     Dosage: 20 MG, ONCE/SINGLE
     Route: 042
     Dates: start: 20230628, end: 20230628
  5. ACETAMINOPHEN [Suspect]
     Active Substance: ACETAMINOPHEN
     Indication: Pain prophylaxis
     Dosage: 1 G
     Route: 042
     Dates: start: 20230628, end: 20230629
  6. KETOPROFEN [Suspect]
     Active Substance: KETOPROFEN
     Indication: Pain prophylaxis
     Dosage: 100 MG, ONCE/SINGLE
     Route: 042
     Dates: start: 20230628, end: 20230628
  7. ROPIVACAINE [Suspect]
     Active Substance: ROPIVACAINE
     Indication: Infiltration anaesthesia
     Dosage: UNK
     Route: 053
     Dates: start: 20230628, end: 20230628
  8. SUFENTANIL [Suspect]
     Active Substance: SUFENTANIL
     Indication: General anaesthesia
     Dosage: 25 UG, ONCE/SINGLE
     Route: 042
     Dates: start: 20230628, end: 20230628
  9. THIOPENTAL SODIUM [Suspect]
     Active Substance: THIOPENTAL SODIUM
     Indication: General anaesthesia
     Dosage: 450 MG, ONCE/SINGLE
     Route: 042
     Dates: start: 20230628, end: 20230628
  10. TRANEXAMIC ACID [Suspect]
     Active Substance: TRANEXAMIC ACID
     Indication: Haemorrhage prophylaxis
     Dosage: 1 G, ONCE/SINGLE
     Route: 042
     Dates: start: 20230628, end: 20230628
  11. CETIRIZINE [Concomitant]
     Active Substance: CETIRIZINE HYDROCHLORIDE
     Indication: Urticaria chronic
     Dosage: AMP
     Route: 030
  12. DICLOFENAC [Concomitant]
     Active Substance: DICLOFENAC
     Indication: Product used for unknown indication
     Dosage: UNK
     Route: 065
  13. SIMPONI [Concomitant]
     Active Substance: GOLIMUMAB
     Indication: Product used for unknown indication
     Dosage: UNK
     Route: 065

REACTIONS (2)
  - Urticaria [Recovered/Resolved]
  - Tachycardia [Recovered/Resolved]

NARRATIVE: CASE EVENT DATE: 20230628
